FAERS Safety Report 24006922 (Version 5)
Quarter: 2024Q4

REPORT INFORMATION
  Report Type: Spontaneous
  Country: JP (occurrence: JP)
  Receive Date: 20240624
  Receipt Date: 20241218
  Transmission Date: 20250115
  Serious: Yes (Other)
  Sender: BRISTOL-MYERS SQUIBB COMPANY
  Company Number: JP-ONO-2024JP012967

PATIENT
  Age: 76 Year
  Sex: Male

DRUGS (1)
  1. NIVOLUMAB [Suspect]
     Active Substance: NIVOLUMAB
     Indication: Pharyngeal cancer
     Route: 041

REACTIONS (4)
  - Inappropriate antidiuretic hormone secretion [Unknown]
  - Immune-mediated myocarditis [Recovered/Resolved]
  - Immune-mediated hepatic disorder [Unknown]
  - Immune-mediated lung disease [Unknown]
